FAERS Safety Report 19177874 (Version 1)
Quarter: 2021Q2

REPORT INFORMATION
  Report Type: Spontaneous
  Country: US (occurrence: US)
  Receive Date: 20210426
  Receipt Date: 20210426
  Transmission Date: 20210717
  Serious: No
  Sender: FDA-Public Use
  Company Number: US-ELI_LILLY_AND_COMPANY-US202104009207

PATIENT
  Age: 26 Year
  Sex: Female

DRUGS (1)
  1. REYVOW [Suspect]
     Active Substance: LASMIDITAN
     Indication: PRODUCT USED FOR UNKNOWN INDICATION
     Dosage: UNK UNK (CUT THE SAMPLE IN HALF AND TOOK HALF OF THE SAMPLE PILL), UNKNOWN
     Route: 065

REACTIONS (2)
  - Paraesthesia [Unknown]
  - Hypoaesthesia oral [Unknown]
